FAERS Safety Report 19030798 (Version 2)
Quarter: 2021Q1

REPORT INFORMATION
  Report Type: Spontaneous
  Country: FR (occurrence: FR)
  Receive Date: 20210319
  Receipt Date: 20210324
  Transmission Date: 20210420
  Serious: Yes (Other)
  Sender: FDA-Public Use
  Company Number: NVSC2021FR060460

PATIENT
  Age: 67 Year
  Sex: Male
  Weight: 75 kg

DRUGS (2)
  1. LUTATHERA [Suspect]
     Active Substance: LUTETIUM OXODOTREOTIDE LU-177
     Indication: NEUROENDOCRINE TUMOUR
     Dosage: 7400 MBQ
     Route: 042
     Dates: start: 202011, end: 20210309
  2. IOMEPROL [Suspect]
     Active Substance: IOMEPROL
     Indication: SCAN
     Dosage: 50 ML
     Route: 042

REACTIONS (4)
  - Syncope [Recovered/Resolved]
  - Disorientation [Recovered/Resolved]
  - Eye movement disorder [Recovered/Resolved]
  - Retching [Recovered/Resolved]

NARRATIVE: CASE EVENT DATE: 20210309
